FAERS Safety Report 13468699 (Version 1)
Quarter: 2017Q2

REPORT INFORMATION
  Report Type: Spontaneous
  Country: US (occurrence: US)
  Receive Date: 20170421
  Receipt Date: 20170421
  Transmission Date: 20170830
  Serious: Yes (Hospitalization, Other)
  Sender: FDA-Public Use
  Company Number: US-AMNEAL PHARMACEUTICALS-2017AMN00483

PATIENT
  Sex: Female
  Weight: 2.9 kg

DRUGS (10)
  1. ACETAMINOPHEN. [Concomitant]
     Active Substance: ACETAMINOPHEN
  2. REGN2222 [Concomitant]
     Indication: RESPIRATORY SYNCYTIAL VIRUS INFECTION
     Dosage: UNK
     Dates: start: 20161222, end: 20170216
  3. AMOXICILLIN. [Concomitant]
     Active Substance: AMOXICILLIN
  4. LACTOBACILLUS [Concomitant]
     Active Substance: LACTOBACILLUS ACIDOPHILUS
  5. POLIOVIRUS VACCINE LIVE ORAL [Concomitant]
  6. NIZATIDINE. [Suspect]
     Active Substance: NIZATIDINE
     Indication: GASTROOESOPHAGEAL REFLUX DISEASE
     Dosage: UNK
     Dates: start: 20170227, end: 20170227
  7. PREVACID [Concomitant]
     Active Substance: LANSOPRAZOLE
  8. HAEMOPHILUS B CONJUGATE VACCINE NOS [Concomitant]
     Active Substance: HAEMOPHILUS B CONJUGATE VACCINE
  9. POLY VITAMIN WITH IRON [Concomitant]
  10. PNEUMOCOCCAL 13 VALENT VACCINE [Concomitant]
     Active Substance: PNEUMOCOCCAL 13-VALENT CONJUGATE VACCINE

REACTIONS (2)
  - Sandifer^s syndrome [Unknown]
  - Seizure [Recovered/Resolved]
